FAERS Safety Report 5796261-7 (Version None)
Quarter: 2008Q3

REPORT INFORMATION
  Report Type: 
  Country: None (occurrence: None)
  Receive Date: 20080701
  Receipt Date: 20080627
  Transmission Date: 20090109
  Serious: Yes (Other)
  Sender: FDA-Public Use
  Company Number: CA-BRISTOL-MYERS SQUIBB COMPANY-14244396

PATIENT
  Age: 42 Year
  Sex: Male

DRUGS (5)
  1. ATAZANAVIR [Suspect]
     Dates: start: 20060609
  2. RITONAVIR [Suspect]
     Dates: start: 20060609
  3. TENOFOVIR DF + EMTRICITABINE [Suspect]
     Dosage: STOPPED TENOFOVIR/3TC ON 08AUG06, STARTED TENOFOVIR/FTC
     Dates: start: 20060808
  4. TENOFOVIR DISOPROXIL FUMARATE [Concomitant]
     Dosage: STOPPED ON 08AUG06 AND AGAIN RESTARTED
     Dates: start: 20060609
  5. LAMIVUDINE [Concomitant]
     Dosage: STOPPED ON 08AUG06 AND AGAIN RESTARTED
     Dates: start: 20060609

REACTIONS (2)
  - GLOMERULONEPHRITIS [None]
  - HENOCH-SCHONLEIN PURPURA [None]
